FAERS Safety Report 16868696 (Version 1)
Quarter: 2019Q4

REPORT INFORMATION
  Report Type: Spontaneous
  Country: US (occurrence: US)
  Receive Date: 20190930
  Receipt Date: 20190930
  Transmission Date: 20200122
  Serious: Yes (Hospitalization)
  Sender: FDA-Public Use
  Company Number: None

PATIENT
  Sex: Female

DRUGS (6)
  1. GABAPENTIN. [Concomitant]
     Active Substance: GABAPENTIN
  2. FOLIC ACID. [Concomitant]
     Active Substance: FOLIC ACID
  3. VITAMIN B-6 [Concomitant]
     Active Substance: PYRIDOXINE
  4. ENBREL [Suspect]
     Active Substance: ETANERCEPT
     Indication: RHEUMATOID ARTHRITIS
     Dosage: ?          OTHER FREQUENCY:EVERY WEEK;?
     Route: 058
     Dates: start: 20190706
  5. METHOTREXATE. [Concomitant]
     Active Substance: METHOTREXATE
  6. ISONIAZID. [Concomitant]
     Active Substance: ISONIAZID

REACTIONS (3)
  - Oropharyngeal pain [None]
  - Nasal congestion [None]
  - Rheumatoid arthritis [None]
